FAERS Safety Report 6131109-2 (Version None)
Quarter: 2009Q1

REPORT INFORMATION
  Report Type: 
  Country: None (occurrence: None)
  Receive Date: 20090325
  Receipt Date: 20090317
  Transmission Date: 20090719
  Serious: Yes (Other)
  Sender: FDA-Public Use
  Company Number: PHHY2009DE10652

PATIENT

DRUGS (11)
  1. LOCOL [Suspect]
     Dosage: 20 MG/DAY
     Route: 048
     Dates: start: 20090302
  2. ENALAPRIL MALEATE [Concomitant]
     Dosage: 20 MG
     Route: 048
  3. EZETROL [Concomitant]
     Dosage: 10 MG
     Route: 048
  4. FUROSEMID [Concomitant]
     Dosage: 40 MG
     Route: 048
  5. METHOTREXATE [Concomitant]
     Dosage: UNK
     Route: 048
  6. RASILEZ [Concomitant]
     Dosage: UNK
     Route: 048
  7. ASPIRIN [Concomitant]
     Route: 048
  8. AMLODIPINE [Concomitant]
     Dosage: UNK
     Route: 048
  9. INSULIN [Concomitant]
     Dosage: UNK
     Route: 058
  10. TOREM [Concomitant]
     Dosage: 10 MG
     Route: 048
  11. PLAVIX [Concomitant]
     Dosage: 75 MG
     Route: 048

REACTIONS (1)
  - VITREOUS HAEMORRHAGE [None]
